FAERS Safety Report 22619876 (Version 1)
Quarter: 2023Q2

REPORT INFORMATION
  Report Type: Spontaneous
  Country: US (occurrence: US)
  Receive Date: 20230620
  Receipt Date: 20230620
  Transmission Date: 20230721
  Serious: Yes (Other)
  Sender: FDA-Public Use
  Company Number: US-GLAXOSMITHKLINE-US2023GSK083011

PATIENT

DRUGS (4)
  1. SALMETEROL [Suspect]
     Active Substance: SALMETEROL
     Indication: Asthma
     Dosage: UNK
  2. FLUTICASONE PROPIONATE [Suspect]
     Active Substance: FLUTICASONE PROPIONATE
     Indication: Asthma
     Dosage: UNK
  3. FLUCONAZOLE [Suspect]
     Active Substance: FLUCONAZOLE
     Indication: Coccidioidomycosis
     Dosage: UNK
  4. DOXYCYCLINE [Concomitant]
     Active Substance: DOXYCYCLINE
     Indication: Prophylaxis
     Dosage: UNK

REACTIONS (17)
  - Pemphigus [Recovering/Resolving]
  - Coccidioidomycosis [Recovering/Resolving]
  - Coating in mouth [Recovering/Resolving]
  - Nail disorder [Recovered/Resolved]
  - Pyrexia [Recovering/Resolving]
  - Oropharyngeal candidiasis [Recovering/Resolving]
  - Skin lesion [Recovering/Resolving]
  - Condition aggravated [Recovering/Resolving]
  - Oral disorder [Recovering/Resolving]
  - Blister [Recovered/Resolved]
  - Tongue coated [Recovering/Resolving]
  - Skin erosion [Recovering/Resolving]
  - Paronychia [Recovering/Resolving]
  - Erythema [Recovering/Resolving]
  - Oral mucosa erosion [Recovering/Resolving]
  - Transient acantholytic dermatosis [Recovering/Resolving]
  - Drug ineffective [Unknown]
